FAERS Safety Report 8432856-X (Version None)
Quarter: 2012Q2

REPORT INFORMATION
  Report Type: 
  Country: None (occurrence: None)
  Receive Date: 20120613
  Receipt Date: 20120605
  Transmission Date: 20120825
  Serious: Yes (Hospitalization, Other)
  Sender: FDA-Public Use
  Company Number: FR-ROCHE-1039744

PATIENT
  Sex: Female

DRUGS (4)
  1. MIRCERA [Suspect]
     Indication: ANAEMIA
  2. NEBIVOLOL HCL [Concomitant]
     Indication: HYPERTENSION
     Dates: start: 20110708, end: 20120201
  3. MIRCERA [Suspect]
     Indication: RENAL FAILURE CHRONIC
     Route: 058
     Dates: start: 20110701, end: 20120116
  4. IRBESARTAN [Concomitant]
     Indication: HYPERTENSION
     Route: 048
     Dates: start: 20100101, end: 20120201

REACTIONS (9)
  - PROTEINURIA [None]
  - WEIGHT INCREASED [None]
  - HYPERTENSIVE CRISIS [None]
  - HYPERTENSION [None]
  - ANAEMIA [None]
  - OEDEMA PERIPHERAL [None]
  - BLOOD CREATININE INCREASED [None]
  - HEADACHE [None]
  - HYPERCREATININAEMIA [None]
